FAERS Safety Report 14650448 (Version 3)
Quarter: 2018Q2

REPORT INFORMATION
  Report Type: Spontaneous
  Country: JP (occurrence: JP)
  Receive Date: 20180316
  Receipt Date: 20180518
  Transmission Date: 20180711
  Serious: Yes (Life-Threatening, Hospitalization)
  Sender: FDA-Public Use
  Company Number: JP-ELI_LILLY_AND_COMPANY-JP201803003257

PATIENT
  Age: 57 Year
  Sex: Male
  Weight: 62 kg

DRUGS (11)
  1. CYRAMZA [Suspect]
     Active Substance: RAMUCIRUMAB
     Dosage: 588 MG, CYCLICAL
     Route: 041
     Dates: start: 20170120, end: 20170120
  2. FLUOROURACIL. [Concomitant]
     Active Substance: FLUOROURACIL
     Indication: RECTAL CANCER
     Dosage: 776 MG, CYCLICAL
     Route: 040
     Dates: start: 20161014
  3. IRINOTECAN [Concomitant]
     Active Substance: IRINOTECAN
     Dosage: 291 MG, CYCLICAL
     Route: 041
     Dates: start: 20170120, end: 20170120
  4. IRINOTECAN [Concomitant]
     Active Substance: IRINOTECAN
     Indication: RECTAL CANCER
     Dosage: 291 MG, CYCLICAL
     Route: 041
     Dates: start: 20161014
  5. LEVOFOLINATE CALCIUM [Concomitant]
     Active Substance: LEVOLEUCOVORIN CALCIUM
     Dosage: 338 MG, CYCLICAL
     Route: 041
     Dates: start: 20170120, end: 20170120
  6. NEXIUM [Concomitant]
     Active Substance: ESOMEPRAZOLE MAGNESIUM
     Indication: PROPHYLAXIS
     Dosage: 20 MG, UNKNOWN
     Route: 048
     Dates: start: 20161014, end: 20170120
  7. FLUOROURACIL. [Concomitant]
     Active Substance: FLUOROURACIL
     Dosage: 4660 MG, CYCLICAL
     Route: 041
     Dates: start: 20170120
  8. CYRAMZA [Suspect]
     Active Substance: RAMUCIRUMAB
     Indication: RECTAL CANCER
     Dosage: 588 MG, CYCLICAL
     Route: 041
     Dates: start: 20161014
  9. FLUOROURACIL. [Concomitant]
     Active Substance: FLUOROURACIL
     Dosage: 4660 MG, CYCLICAL
     Route: 041
     Dates: start: 20161014
  10. LEVOFOLINATE CALCIUM [Concomitant]
     Active Substance: LEVOLEUCOVORIN CALCIUM
     Indication: RECTAL CANCER
     Dosage: 338 MG, CYCLICAL
     Route: 041
     Dates: start: 20161014
  11. FLUOROURACIL. [Concomitant]
     Active Substance: FLUOROURACIL
     Dosage: 776 MG, CYCLICAL
     Route: 040
     Dates: start: 20170120, end: 20170120

REACTIONS (7)
  - Stoma site ulcer [Recovered/Resolved]
  - Peritonitis [Recovered/Resolved]
  - Gastrointestinal stoma necrosis [Unknown]
  - Suture rupture [Recovered/Resolved]
  - Suture rupture [Recovering/Resolving]
  - Ascites [Not Recovered/Not Resolved]
  - Stoma site infection [Unknown]

NARRATIVE: CASE EVENT DATE: 20161201
